FAERS Safety Report 23948558 (Version 6)
Quarter: 2025Q4

REPORT INFORMATION
  Report Type: Report from Study
  Country: AR (occurrence: AR)
  Receive Date: 20240607
  Receipt Date: 20251118
  Transmission Date: 20260117
  Serious: Yes (Other)
  Sender: JOHNSON AND JOHNSON
  Company Number: AR-JNJFOC-20240590029

PATIENT
  Age: 62 Year
  Sex: Female
  Weight: 158 kg

DRUGS (4)
  1. SIMPONI [Suspect]
     Active Substance: GOLIMUMAB
     Indication: Rheumatoid arthritis
     Route: 058
     Dates: start: 20240507
  2. PENICILLIN G [Concomitant]
     Active Substance: PENICILLIN G
     Indication: Product used for unknown indication
  3. AMOXICILLIN [Concomitant]
     Active Substance: AMOXICILLIN
     Indication: Product used for unknown indication
  4. DEXAMETHASONE [Concomitant]
     Active Substance: DEXAMETHASONE
     Indication: Product used for unknown indication

REACTIONS (12)
  - Ludwig angina [Unknown]
  - Diverticulitis [Unknown]
  - Tympanic membrane perforation [Unknown]
  - Ear infection [Not Recovered/Not Resolved]
  - Pharyngitis [Unknown]
  - Hepatic enzyme increased [Recovered/Resolved]
  - Injection site swelling [Unknown]
  - Application site pain [Unknown]
  - Mass [Unknown]
  - Hiatus hernia [Unknown]
  - Haemorrhoids [Unknown]
  - Tonsillitis [Unknown]

NARRATIVE: CASE EVENT DATE: 20240516
